FAERS Safety Report 8297629-X (Version None)
Quarter: 2012Q2

REPORT INFORMATION
  Report Type: 
  Country: None (occurrence: None)
  Receive Date: 20120419
  Receipt Date: 20120412
  Transmission Date: 20120825
  Serious: Yes (Hospitalization)
  Sender: FDA-Public Use
  Company Number: US-UCBSA-053533

PATIENT
  Age: 32 Year
  Sex: Female
  Weight: 60.09 kg

DRUGS (7)
  1. FLEXERIL [Concomitant]
     Route: 048
     Dates: start: 20110202
  2. OXYCODONE HCL [Concomitant]
     Dosage: 5/325 MG PRN
  3. MAGNESIUM LACTATE [Concomitant]
     Indication: HYPOMAGNESAEMIA
     Route: 048
     Dates: start: 20110608
  4. CIMZIA [Suspect]
     Indication: CROHN'S DISEASE
     Route: 058
     Dates: start: 20110131
  5. VALIUM [Concomitant]
  6. VITAMIN D [Concomitant]
     Indication: MALABSORPTION
     Dosage: I CAPSULE
     Route: 048
     Dates: start: 20111028
  7. OCELLA ETHYNYLESTRADIOL [Concomitant]
     Indication: ORAL CONTRACEPTION
     Route: 048
     Dates: start: 20110823

REACTIONS (1)
  - RECTAL PERFORATION [None]
